FAERS Safety Report 9359870 (Version 4)
Quarter: 2013Q3

REPORT INFORMATION
  Report Type: Report from Study
  Country: CA (occurrence: CA)
  Receive Date: 20130621
  Receipt Date: 20130712
  Transmission Date: 20140515
  Serious: Yes (Death, Hospitalization)
  Sender: FDA-Public Use
  Company Number: CA-ROCHE-1223505

PATIENT
  Age: 36 Year
  Sex: Female
  Weight: 64 kg

DRUGS (12)
  1. AVASTIN [Suspect]
     Indication: GLIOBLASTOMA
     Route: 042
     Dates: start: 20130423
  2. AVASTIN [Suspect]
     Route: 065
     Dates: start: 20130510, end: 20130607
  3. METHADONE [Suspect]
     Indication: PAIN
     Route: 065
  4. DECADRON [Concomitant]
     Route: 065
  5. GABAPENTIN [Concomitant]
     Route: 065
  6. PANTOLOC [Concomitant]
     Route: 065
  7. CELEBREX [Concomitant]
     Route: 065
  8. SUFENTANIL [Concomitant]
     Route: 065
  9. FENTANYL PATCH [Concomitant]
     Route: 062
  10. DILAUDID [Concomitant]
     Route: 065
  11. GARLIC [Concomitant]
     Route: 065
  12. VALTREX [Concomitant]
     Route: 065

REACTIONS (9)
  - Drug ineffective [Fatal]
  - Disease progression [Fatal]
  - Urinary tract infection [Recovered/Resolved]
  - Convulsion [Unknown]
  - Cerebral haemorrhage [Unknown]
  - Dysphonia [Not Recovered/Not Resolved]
  - Dyspnoea [Not Recovered/Not Resolved]
  - Confusional state [Not Recovered/Not Resolved]
  - Excoriation [Unknown]
